FAERS Safety Report 9372966 (Version 2)
Quarter: 2013Q3

REPORT INFORMATION
  Report Type: Spontaneous
  Country: GB (occurrence: None)
  Receive Date: 20130624
  Receipt Date: 20130716
  Transmission Date: 20140515
  Serious: Yes (Other)
  Sender: FDA-Public Use
  Company Number: GER/UKI/13/0030041

PATIENT
  Age: 41 Year
  Sex: Male

DRUGS (4)
  1. FLUOXETINE (FLUOXETINE) [Suspect]
     Indication: DEPRESSION
     Dosage: 60 MG, 1 IN 1 D, ORAL
     Route: 048
  2. CLOZARIL (CLOZAPINE) [Suspect]
     Indication: SCHIZOPHRENIA
     Route: 048
     Dates: start: 20020529
  3. ACETAZOLAMIDE [Suspect]
     Indication: MIGRAINE
     Dosage: STOPPED
  4. DIAZEPAM [Concomitant]

REACTIONS (9)
  - Anxiety [None]
  - Balance disorder [None]
  - Migraine [None]
  - Depression [None]
  - Dizziness [None]
  - Neutropenia [None]
  - Obsessive thoughts [None]
  - Psychotic disorder [None]
  - White blood cell count decreased [None]
